FAERS Safety Report 21255380 (Version 3)
Quarter: 2022Q3

REPORT INFORMATION
  Report Type: Spontaneous
  Country: FR (occurrence: FR)
  Receive Date: 20220825
  Receipt Date: 20220930
  Transmission Date: 20221026
  Serious: Yes (Hospitalization, Other)
  Sender: FDA-Public Use
  Company Number: None

PATIENT
  Age: 23 Year
  Sex: Female
  Weight: 56 kg

DRUGS (1)
  1. NEXPLANON [Suspect]
     Active Substance: ETONOGESTREL
     Indication: Contraceptive implant
     Dosage: 1 DOSAGE FORM, IMPLANT FOR SUBCUTANEOUS USE
     Route: 058
     Dates: start: 20190516, end: 20220720

REACTIONS (2)
  - Thoracotomy [Recovering/Resolving]
  - Device dislocation [Recovered/Resolved]

NARRATIVE: CASE EVENT DATE: 20220501
